FAERS Safety Report 5594259-5 (Version None)
Quarter: 2007Q4

REPORT INFORMATION
  Report Type: 
  Country: None (occurrence: None)
  Receive Date: 20071218
  Receipt Date: 20070312
  Transmission Date: 20080405
  Serious: Yes (Hospitalization, Other)
  Sender: FDA-Public Use
  Company Number: 2007001916

PATIENT
  Age: 79 Year
  Sex: Male
  Weight: 88.5 kg

DRUGS (1)
  1. BEXTRA [Suspect]
     Indication: ARTHRITIS
     Dosage: 10 MG (10 MG,1 IN 1 D)
     Dates: start: 20040301

REACTIONS (6)
  - ANXIETY [None]
  - CARDIAC FAILURE [None]
  - CONDITION AGGRAVATED [None]
  - HEADACHE [None]
  - HYPERTENSION [None]
  - MYOCARDIAL INFARCTION [None]
